FAERS Safety Report 9444654 (Version 4)
Quarter: 2013Q4

REPORT INFORMATION
  Report Type: Spontaneous
  Country: US (occurrence: US)
  Receive Date: 20130807
  Receipt Date: 20131004
  Transmission Date: 20140711
  Serious: Yes (Other)
  Sender: FDA-Public Use
  Company Number: US-PFIZER INC-2013228282

PATIENT
  Age: 75 Year
  Sex: Male
  Weight: 79.37 kg

DRUGS (13)
  1. LYRICA [Suspect]
     Indication: NEUROPATHY PERIPHERAL
     Dosage: 100 MG, 2X/DAY
     Route: 048
     Dates: end: 20130828
  2. NEURONTIN [Suspect]
     Dosage: UNK
     Dates: start: 20110823, end: 20111103
  3. CRESTOR [Concomitant]
     Indication: BLOOD CHOLESTEROL INCREASED
     Dosage: UNK
  4. PLAVIX [Concomitant]
     Dosage: 70 MG
     Dates: start: 20120826
  5. CIALIS [Concomitant]
     Dosage: UNK
     Dates: start: 20130828
  6. POTASSIUM [Concomitant]
     Dosage: 10 MEQ, UNK
     Dates: start: 20130828
  7. LASIX [Concomitant]
     Dosage: 20 MG, 1X/DAY
     Dates: start: 20130828
  8. PRAVASTATIN [Concomitant]
     Dosage: 40 MG, 1X/DAY
     Dates: start: 20130805
  9. LANTUS [Concomitant]
     Dosage: 100 UNIT/ML (3 ML)
     Dates: start: 20120808
  10. JANUVIA [Concomitant]
     Dosage: 50 MG, 1X/DAY
     Dates: start: 20120808
  11. NORVASC [Concomitant]
     Dosage: 10 MG, 1X/DAY
     Dates: start: 20120808
  12. NEXIUM [Concomitant]
     Dosage: 40 MG, 1X/DAY
     Dates: start: 20120808
  13. ATENOLOL-C [Concomitant]
     Dosage: 50MG/25MG, UNK
     Dates: start: 20111227

REACTIONS (9)
  - Suicidal ideation [Recovering/Resolving]
  - Back disorder [Unknown]
  - Depression [Unknown]
  - Mood swings [Unknown]
  - Decreased appetite [Unknown]
  - Dizziness [Recovering/Resolving]
  - Fluid retention [Recovered/Resolved]
  - Drug hypersensitivity [Unknown]
  - Fatigue [Recovering/Resolving]
